FAERS Safety Report 23987230 (Version 1)
Quarter: 2024Q2

REPORT INFORMATION
  Report Type: Report from Study
  Country: US (occurrence: US)
  Receive Date: 20240618
  Receipt Date: 20240618
  Transmission Date: 20240716
  Serious: Yes (Other)
  Sender: FDA-Public Use
  Company Number: US-009507513-2406USA003770

PATIENT
  Age: 52 Year
  Sex: Female

DRUGS (2)
  1. SOTATERCEPT [Suspect]
     Active Substance: SOTATERCEPT
     Indication: Pulmonary arterial hypertension
     Dosage: STRENGHT: 45 MG, 0.7ML Q3W
     Route: 058
     Dates: start: 202406
  2. OPSUMIT [Concomitant]
     Active Substance: MACITENTAN

REACTIONS (3)
  - Rectal haemorrhage [Not Recovered/Not Resolved]
  - Abdominal pain [Recovered/Resolved]
  - Haemorrhoids [Unknown]

NARRATIVE: CASE EVENT DATE: 20240608
